FAERS Safety Report 9475201 (Version 1)
Quarter: 2013Q3

REPORT INFORMATION
  Report Type: Spontaneous
  Country: BR (occurrence: BR)
  Receive Date: 20130825
  Receipt Date: 20130825
  Transmission Date: 20140515
  Serious: Yes (Hospitalization)
  Sender: FDA-Public Use
  Company Number: BR-MYLANLABS-2013S1018087

PATIENT
  Age: 45 Year
  Sex: Female

DRUGS (3)
  1. THIAMAZOLE [Suspect]
     Indication: HYPERTHYROIDISM
     Dosage: 40MG/DAY
     Route: 065
  2. THIAMAZOLE [Suspect]
     Indication: HYPERTHYROIDISM
     Dosage: 60MG/DAY
     Route: 065
  3. CAPTOPRIL [Concomitant]
     Indication: HYPERTENSION
     Dosage: 75MG/DAY
     Route: 065

REACTIONS (2)
  - Hypothyroidism [Recovered/Resolved]
  - Acute psychosis [Recovered/Resolved]
